FAERS Safety Report 15468733 (Version 3)
Quarter: 2019Q3

REPORT INFORMATION
  Report Type: Spontaneous
  Country: IN (occurrence: IN)
  Receive Date: 20181005
  Receipt Date: 20190911
  Transmission Date: 20191004
  Serious: Yes (Hospitalization, Other)
  Sender: FDA-Public Use
  Company Number: IN-JNJFOC-20181005894

PATIENT
  Age: 23 Year
  Sex: Female
  Weight: 49 kg

DRUGS (16)
  1. DELAMANID [Suspect]
     Active Substance: DELAMANID
     Indication: TUBERCULOSIS
     Route: 048
     Dates: start: 20180730, end: 2018
  2. AMOXI-CLAV [Suspect]
     Active Substance: AMOXICILLIN\CLAVULANATE POTASSIUM
     Indication: TUBERCULOSIS
     Route: 065
     Dates: start: 20180730, end: 2018
  3. LINEZOLID. [Suspect]
     Active Substance: LINEZOLID
     Indication: TUBERCULOSIS
     Route: 065
     Dates: start: 20180730, end: 2018
  4. CLOFAZIMINE [Suspect]
     Active Substance: CLOFAZIMINE
     Indication: TUBERCULOSIS
     Route: 065
     Dates: start: 20180730, end: 2018
  5. OMEPRAZOLE. [Concomitant]
     Active Substance: OMEPRAZOLE
     Dosage: ALONG WITH IMIPENEM
     Route: 048
     Dates: start: 20180730
  6. IMIPENEM [Suspect]
     Active Substance: IMIPENEM
     Route: 065
     Dates: start: 2018
  7. DELAMANID [Suspect]
     Active Substance: DELAMANID
     Route: 048
     Dates: start: 2018
  8. CLOFAZIMINE [Suspect]
     Active Substance: CLOFAZIMINE
     Route: 065
     Dates: start: 2018
  9. BEDAQUILINE [Suspect]
     Active Substance: BEDAQUILINE
     Route: 048
     Dates: start: 2018
  10. PYRIDOXINE [Concomitant]
     Active Substance: PYRIDOXINE
     Indication: PROPHYLAXIS
     Route: 048
     Dates: start: 20180730
  11. IMIPENEM [Suspect]
     Active Substance: IMIPENEM
     Indication: TUBERCULOSIS
     Route: 065
     Dates: start: 20180730, end: 2018
  12. PYRAZINAMIDE. [Suspect]
     Active Substance: PYRAZINAMIDE
     Route: 065
     Dates: start: 2018
  13. AMOXI-CLAV [Suspect]
     Active Substance: AMOXICILLIN\CLAVULANATE POTASSIUM
     Route: 065
     Dates: start: 2018
  14. LINEZOLID. [Suspect]
     Active Substance: LINEZOLID
     Route: 065
     Dates: start: 2018
  15. BEDAQUILINE [Suspect]
     Active Substance: BEDAQUILINE
     Indication: TUBERCULOSIS
     Route: 048
     Dates: start: 20180804, end: 2018
  16. PYRAZINAMIDE. [Suspect]
     Active Substance: PYRAZINAMIDE
     Indication: TUBERCULOSIS
     Route: 065
     Dates: start: 20180730, end: 2018

REACTIONS (5)
  - Asthenia [Unknown]
  - Nausea [Not Recovered/Not Resolved]
  - Vomiting [Recovered/Resolved]
  - Decreased appetite [Recovered/Resolved]
  - Weight decreased [Unknown]

NARRATIVE: CASE EVENT DATE: 201808
